FAERS Safety Report 5595531-5 (Version None)
Quarter: 2008Q1

REPORT INFORMATION
  Report Type: 
  Country: None (occurrence: None)
  Receive Date: 20080116
  Receipt Date: 20080116
  Transmission Date: 20080703
  Serious: Yes (Death, Hospitalization)
  Sender: FDA-Public Use
  Company Number: None

PATIENT
  Sex: Female
  Weight: 64.2 kg

DRUGS (3)
  1. ELOXATIN [Suspect]
     Dosage: 145 MG
     Dates: start: 20070228, end: 20070228
  2. FLUOROURACIL [Suspect]
     Dosage: 6725 MG
     Dates: end: 20070228
  3. LEUCOVORIN CALCIUM [Suspect]
     Dosage: 700 MG
     Dates: end: 20070228

REACTIONS (3)
  - COLON CANCER [None]
  - GENERAL PHYSICAL HEALTH DETERIORATION [None]
  - PULMONARY FIBROSIS [None]
